FAERS Safety Report 16912462 (Version 4)
Quarter: 2020Q2

REPORT INFORMATION
  Report Type: Report from Study
  Country: AR (occurrence: AR)
  Receive Date: 20191014
  Receipt Date: 20200630
  Transmission Date: 20200713
  Serious: Yes (Hospitalization, Other)
  Sender: FDA-Public Use
  Company Number: AR-ACTELION-A-CH2018-184333

PATIENT
  Age: 50 Year
  Sex: Female
  Weight: 89 kg

DRUGS (2)
  1. SILDENAFIL. [Concomitant]
     Active Substance: SILDENAFIL
     Route: 048
  2. OPSUMIT [Suspect]
     Active Substance: MACITENTAN
     Indication: PULMONARY ARTERIAL HYPERTENSION
     Dosage: 10 MG, QD
     Route: 048
     Dates: start: 20140101

REACTIONS (6)
  - Pulmonary arterial hypertension [Unknown]
  - Condition aggravated [Unknown]
  - Dyspnoea [Unknown]
  - Hypercholesterolaemia [Unknown]
  - Bronchospasm [Unknown]
  - Bronchitis [Unknown]

NARRATIVE: CASE EVENT DATE: 20181227
